FAERS Safety Report 7456113-3 (Version None)
Quarter: 2011Q2

REPORT INFORMATION
  Report Type: 
  Country: None (occurrence: None)
  Receive Date: 20110503
  Receipt Date: 20110429
  Transmission Date: 20111010
  Serious: No
  Sender: FDA-Public Use
  Company Number: US-PFIZER INC-2011019390

PATIENT
  Sex: Female

DRUGS (1)
  1. DEPO-TESTOSTERONE [Suspect]
     Dosage: 200 MG, UNK

REACTIONS (2)
  - POOR QUALITY DRUG ADMINISTERED [None]
  - BLOOD TESTOSTERONE DECREASED [None]
